FAERS Safety Report 8450697-4 (Version None)
Quarter: 2012Q2

REPORT INFORMATION
  Report Type: 
  Country: None (occurrence: None)
  Receive Date: 20120613
  Receipt Date: 20120604
  Transmission Date: 20120825
  Serious: Yes (Other)
  Sender: FDA-Public Use
  Company Number: AUR-APL-2012-02527

PATIENT
  Age: 54 Year
  Sex: Female
  Weight: 86.17 kg

DRUGS (10)
  1. LYRICA [Suspect]
     Indication: RESTLESS LEGS SYNDROME
     Dosage: (150 MG, 1 D), ORAL
     Route: 048
     Dates: start: 20080301
  2. LYRICA [Suspect]
     Indication: NEUROPATHY PERIPHERAL
     Dosage: (150 MG, 1 D), ORAL
     Route: 048
     Dates: start: 20080301
  3. NAPROXEN (ALEVE) [Concomitant]
  4. SERTRALINE HYDROCHLORIDE [Concomitant]
  5. METOPROLOL TARTRATE [Suspect]
     Indication: DIURETIC THERAPY
     Dosage: (50 MG, 1 D), UNKNOWN
  6. PANTOPRAZOLE SODIUM [Concomitant]
  7. HYDROCHLOROTHIAZIDE [Suspect]
     Indication: DIURETIC THERAPY
     Dosage: (50 MG, 1 D)
  8. PROTONIX [Suspect]
     Indication: PRODUCT USED FOR UNKNOWN INDICATION
     Dosage: UNKNOWN
  9. ZOLOFT [Suspect]
     Indication: PRODUCT USED FOR UNKNOWN INDICATION
  10. XYZAL [Concomitant]

REACTIONS (9)
  - ATROPHY [None]
  - OEDEMA PERIPHERAL [None]
  - FEELING ABNORMAL [None]
  - DRUG INEFFECTIVE [None]
  - URTICARIA [None]
  - CONDITION AGGRAVATED [None]
  - MUSCLE TWITCHING [None]
  - INSOMNIA [None]
  - PAIN [None]
